FAERS Safety Report 24547183 (Version 1)
Quarter: 2024Q4

REPORT INFORMATION
  Report Type: Spontaneous
  Country: US (occurrence: US)
  Receive Date: 20241025
  Receipt Date: 20241025
  Transmission Date: 20250114
  Serious: Yes (Hospitalization, Other)
  Sender: AMGEN
  Company Number: US-AMGEN-USASP2024208368

PATIENT
  Sex: Female

DRUGS (2)
  1. RITUXIMAB [Suspect]
     Active Substance: RITUXIMAB
     Indication: Rheumatoid arthritis
     Dosage: UNK
     Route: 065
  2. PREDNISONE [Suspect]
     Active Substance: PREDNISONE
     Indication: COVID-19
     Dosage: 12.5 MILLIGRAM, QD
     Route: 065

REACTIONS (10)
  - Pulmonary embolism [Unknown]
  - Disseminated herpes simplex [Unknown]
  - Immunodeficiency [Unknown]
  - Hypogammaglobulinaemia [Unknown]
  - Acute generalised exanthematous pustulosis [Unknown]
  - Off label use [Unknown]
  - COVID-19 [Unknown]
  - Gastrooesophageal reflux disease [Unknown]
  - Depression [Unknown]
  - Hypertension [Unknown]
